FAERS Safety Report 8162513-9 (Version None)
Quarter: 2012Q1

REPORT INFORMATION
  Report Type: 
  Country: None (occurrence: None)
  Receive Date: 20120103
  Receipt Date: 20111007
  Transmission Date: 20120608
  Serious: No
  Sender: FDA-Public Use
  Company Number: AE-2011-001862

PATIENT
  Age: 59 Year
  Sex: Male
  Weight: 88.4514 kg

DRUGS (9)
  1. MULTIPLE VITAMIN (MULTIPLE VITAMINS) [Concomitant]
  2. PEGASYS [Concomitant]
  3. CRANBERRY CAPS (MULTIVITAMIN AND MINERAL SUPPLEMENT) [Concomitant]
  4. INCIVEK [Suspect]
     Dosage: 2250 MG (750 MG, 1 IN 8 HR), ORAL
     Route: 048
     Dates: start: 20110923
  5. FLAXSEED OIL (LINUM USITATISSIMUM SEED OIL) [Concomitant]
  6. RIBAVIRIN [Concomitant]
  7. VITAMIN D [Concomitant]
  8. CALCIUM CARBONATE [Concomitant]
  9. METAMUCIL (METAMUCIL) [Concomitant]

REACTIONS (4)
  - FEELING ABNORMAL [None]
  - PAIN [None]
  - MALAISE [None]
  - DIARRHOEA [None]
